FAERS Safety Report 6313865-3 (Version None)
Quarter: 2009Q3

REPORT INFORMATION
  Report Type: 
  Country: None (occurrence: None)
  Receive Date: 20090818
  Receipt Date: 20090803
  Transmission Date: 20100115
  Serious: Yes (Life-Threatening, Hospitalization)
  Sender: FDA-Public Use
  Company Number: TH-ROCHE-642099

PATIENT
  Age: 6 Year
  Sex: Female
  Weight: 17.7 kg

DRUGS (24)
  1. BLINDED OSELTAMIVIR [Suspect]
     Indication: AVIAN INFLUENZA
     Dosage: DOSE BLINDED; LAST DOSE ADMINISTERED ON 08 JULY 2009
     Route: 065
     Dates: start: 20090703
  2. OSELTAMIVIR [Suspect]
     Indication: AVIAN INFLUENZA
     Dosage: LAST DOSE ADMINISTERED: 08 JULY 2009
     Route: 065
     Dates: start: 20090702
  3. DORMICUM [Concomitant]
     Indication: SEDATION
     Route: 042
     Dates: start: 20090704
  4. DORMICUM [Concomitant]
     Route: 042
     Dates: start: 20090708, end: 20090811
  5. FENTANYL [Concomitant]
     Indication: SEDATION
     Route: 042
     Dates: start: 20090703
  6. FENTANYL [Concomitant]
     Route: 042
     Dates: start: 20090708
  7. FENTANYL [Concomitant]
     Route: 042
     Dates: start: 20090712
  8. FENTANYL [Concomitant]
     Route: 042
     Dates: start: 20090730, end: 20090811
  9. DOPAMINE HCL [Concomitant]
     Indication: HYPOTENSION
     Route: 042
     Dates: start: 20090704
  10. DOPAMINE HCL [Concomitant]
     Route: 042
     Dates: start: 20090708
  11. DOBUTAMINE HCL [Concomitant]
     Indication: HYPOTENSION
     Route: 042
     Dates: start: 20090704
  12. DOBUTAMINE HCL [Concomitant]
     Route: 042
     Dates: start: 20090708
  13. MEROPENEM [Concomitant]
     Indication: SEPSIS
     Dosage: DRUG REPORTED: MEROPENAM
     Route: 042
     Dates: start: 20090630
  14. AMIKIN [Concomitant]
     Indication: SEPSIS
     Route: 042
     Dates: start: 20090630
  15. OMEPRAZOLE [Concomitant]
     Indication: UPPER GASTROINTESTINAL HAEMORRHAGE
     Route: 042
     Dates: start: 20090630
  16. OMEPRAZOLE [Concomitant]
     Route: 042
     Dates: start: 20090705
  17. DEPAKENE [Concomitant]
     Dosage: DRUG REPORTED: DEPAKIN
     Route: 042
     Dates: start: 20090701
  18. VIDISIC [Concomitant]
     Indication: PROPHYLAXIS
     Dosage: DRUG REPORTED: VIDISIC EYE GEL
     Route: 061
     Dates: start: 20090701
  19. TIGECYCLINE [Concomitant]
     Indication: SEPSIS
     Route: 042
     Dates: start: 20090710
  20. BACTROBAN [Concomitant]
     Indication: WOUND
     Route: 062
  21. BACTROBAN [Concomitant]
     Route: 062
     Dates: start: 20090704
  22. VECURONIUM BROMIDE [Concomitant]
     Route: 042
     Dates: start: 20090712
  23. VECURONIUM BROMIDE [Concomitant]
     Route: 042
     Dates: start: 20090730, end: 20090811
  24. CALCIUM GLUCONATE [Concomitant]
     Dosage: DRUG NAME: 10% CALCIUM GLUCONATE
     Route: 042
     Dates: start: 20090708, end: 20090708

REACTIONS (4)
  - ACUTE RESPIRATORY DISTRESS SYNDROME [None]
  - HYPOPHOSPHATAEMIA [None]
  - HYPOTENSION [None]
  - PNEUMOTHORAX [None]
